FAERS Safety Report 7515225-6 (Version None)
Quarter: 2011Q2

REPORT INFORMATION
  Report Type: 
  Country: None (occurrence: None)
  Receive Date: 20110601
  Receipt Date: 20100602
  Transmission Date: 20111010
  Serious: No
  Sender: FDA-Public Use
  Company Number: US-PFIZER INC-2010070000

PATIENT
  Sex: Female
  Weight: 69 kg

DRUGS (2)
  1. CHANTIX [Suspect]
     Indication: SMOKING CESSATION THERAPY
     Dosage: 0.5 MG, 2X/DAY
     Route: 048
     Dates: start: 20100522
  2. LEXAPRO [Concomitant]
     Dosage: UNK

REACTIONS (2)
  - MYALGIA [None]
  - ARTHRALGIA [None]
